FAERS Safety Report 5512347-6 (Version None)
Quarter: 2007Q4

REPORT INFORMATION
  Report Type: 
  Country: None (occurrence: None)
  Receive Date: 20071112
  Receipt Date: 20071102
  Transmission Date: 20080405
  Serious: Yes (Hospitalization)
  Sender: FDA-Public Use
  Company Number: AU-JNJFOC-20071002410

PATIENT
  Sex: Female

DRUGS (4)
  1. HALDOL [Suspect]
  2. HALDOL [Suspect]
     Indication: DRUG USE FOR UNKNOWN INDICATION
  3. RISPERIDONE [Suspect]
     Indication: DRUG USE FOR UNKNOWN INDICATION
  4. OLANZAPINE [Suspect]
     Indication: DRUG USE FOR UNKNOWN INDICATION

REACTIONS (9)
  - FALL [None]
  - GAIT DISTURBANCE [None]
  - IMMOBILE [None]
  - JOINT STIFFNESS [None]
  - MYOCARDIAL INFARCTION [None]
  - NEUROLEPTIC MALIGNANT SYNDROME [None]
  - PARKINSONISM [None]
  - SEROTONIN SYNDROME [None]
  - STEREOTYPY [None]
